FAERS Safety Report 5058175-X (Version None)
Quarter: 2006Q3

REPORT INFORMATION
  Report Type: 
  Country: None (occurrence: None)
  Receive Date: 20060721
  Receipt Date: 20060509
  Transmission Date: 20061208
  Serious: Yes (Disabling)
  Sender: FDA-Public Use
  Company Number: 2006SE02631

PATIENT
  Age: 883 Month
  Sex: Female
  Weight: 79 kg

DRUGS (11)
  1. BLOPRESS [Suspect]
     Indication: HYPERTENSION
     Route: 048
     Dates: start: 20041206, end: 20041219
  2. BLOPRESS [Suspect]
     Route: 048
     Dates: start: 20041220, end: 20060412
  3. BLOPRESS PLUS [Suspect]
     Indication: HYPERTENSION
     Dosage: 8 MG CANDESARTAN CILEXETIL/12.5 MG HYDROCHLOROTHIAZIDE EVERY EVENING
     Route: 048
     Dates: start: 20041206, end: 20041219
  4. BLOPRESS PLUS [Suspect]
     Dosage: 16 MG CANDESARTAN CILEXETIL/12.5 MG HYDROCHLOROTHIAZIDE EVERY EVENING
     Route: 048
     Dates: start: 20041220, end: 20060401
  5. PRAVACHOL [Concomitant]
     Route: 048
  6. PARIET [Concomitant]
     Indication: REFLUX OESOPHAGITIS
     Route: 048
  7. LISINOPRIL COMP. [Concomitant]
     Route: 048
  8. CONCOR [Concomitant]
     Route: 048
  9. MAXICALC [Concomitant]
     Route: 065
  10. VITAMINE D3 [Concomitant]
     Route: 065
  11. THYREX [Concomitant]
     Route: 048

REACTIONS (1)
  - SALIVARY HYPERSECRETION [None]
